FAERS Safety Report 7478380-2 (Version None)
Quarter: 2011Q2

REPORT INFORMATION
  Report Type: 
  Country: None (occurrence: None)
  Receive Date: 20110505
  Receipt Date: 20110420
  Transmission Date: 20111010
  Serious: Yes (Hospitalization, Other)
  Sender: FDA-Public Use
  Company Number: AMAG201100107

PATIENT
  Age: 70 Year
  Sex: Female
  Weight: 84.8 kg

DRUGS (12)
  1. LASIX [Concomitant]
  2. INSULIN LANTUS (INSULIN GLARGINE) [Concomitant]
  3. HUMALOG [Concomitant]
  4. CYCLOBENZAPRINE [Concomitant]
  5. LISINOPRIL (LISINOPRIL DIHYDRATE) [Concomitant]
  6. ASPIRIN [Concomitant]
  7. QUININE (QUININE HYDROCHLORIDE) [Concomitant]
  8. FERAHEME [Suspect]
     Indication: IRON DEFICIENCY ANAEMIA
     Dosage: 510 MG, SINGLE, INTRAVENOUS
     Route: 042
     Dates: start: 20110412, end: 20110412
  9. FERAHEME [Suspect]
     Indication: NEPHROGENIC ANAEMIA
     Dosage: 510 MG, SINGLE, INTRAVENOUS
     Route: 042
     Dates: start: 20110412, end: 20110412
  10. BYETTA [Concomitant]
  11. ULTRAM [Concomitant]
  12. ORENCIA [Concomitant]

REACTIONS (38)
  - RHABDOMYOLYSIS [None]
  - HEPATIC ENZYME INCREASED [None]
  - NAUSEA [None]
  - DRY SKIN [None]
  - BACTERIAL TEST POSITIVE [None]
  - SEPTIC SHOCK [None]
  - RESPIRATORY ACIDOSIS [None]
  - HYPERHIDROSIS [None]
  - AORTIC ANEURYSM [None]
  - THYROID MASS [None]
  - RENAL FAILURE ACUTE [None]
  - LEUKOPENIA [None]
  - SOMNOLENCE [None]
  - HYPOVOLAEMIA [None]
  - HYPOTENSION [None]
  - CONFUSIONAL STATE [None]
  - HYPONATRAEMIA [None]
  - ADRENAL MASS [None]
  - HAEMATEMESIS [None]
  - PYREXIA [None]
  - COUGH [None]
  - HAEMOGLOBIN DECREASED [None]
  - ASPARTATE AMINOTRANSFERASE INCREASED [None]
  - SEPSIS [None]
  - VOMITING [None]
  - ATRIAL FIBRILLATION [None]
  - HYPOVOLAEMIC SHOCK [None]
  - PNEUMONIA BACTERIAL [None]
  - RESPIRATORY FAILURE [None]
  - LETHARGY [None]
  - THROMBOCYTOPENIA [None]
  - DIZZINESS [None]
  - TACHYCARDIA [None]
  - DIABETES MELLITUS INADEQUATE CONTROL [None]
  - HYPERGLYCAEMIA [None]
  - METABOLIC ACIDOSIS [None]
  - ATELECTASIS [None]
  - ELECTROCARDIOGRAM ST SEGMENT ABNORMAL [None]
